FAERS Safety Report 5241688-5 (Version None)
Quarter: 2007Q1

REPORT INFORMATION
  Report Type: 
  Country: None (occurrence: None)
  Receive Date: 20070220
  Receipt Date: 20070206
  Transmission Date: 20070707
  Serious: Yes (Hospitalization)
  Sender: FDA-Public Use
  Company Number: CA-ELI_LILLY_AND_COMPANY-CA200702001473

PATIENT
  Age: 82 Year
  Sex: Female

DRUGS (9)
  1. FORTEO [Suspect]
     Indication: OSTEOPOROSIS
     Dosage: 20 UG, DAILY (1/D)
     Route: 058
     Dates: start: 20050804, end: 20070202
  2. WARFARIN SODIUM [Concomitant]
  3. FUROSEMIDE [Concomitant]
  4. PREDNISONE [Concomitant]
  5. RANITIDINE [Concomitant]
  6. LANOXIN [Concomitant]
  7. FERROUS FUMERATE [Concomitant]
  8. METOPROLOL SUCCINATE [Concomitant]
  9. CALCIUM [Concomitant]

REACTIONS (1)
  - HAEMORRHAGE [None]
